FAERS Safety Report 21589663 (Version 3)
Quarter: 2022Q4

REPORT INFORMATION
  Report Type: Spontaneous
  Country: US (occurrence: US)
  Receive Date: 20221114
  Receipt Date: 20221213
  Transmission Date: 20230112
  Serious: Yes (Hospitalization, Other)
  Sender: FDA-Public Use
  Company Number: US-UCBSA-2022064962

PATIENT
  Age: 44 Year
  Sex: Male

DRUGS (7)
  1. BRIVIACT [Suspect]
     Active Substance: BRIVARACETAM
     Indication: Symptomatic treatment
     Dosage: UNK MICROGRAM
     Dates: start: 202210, end: 20221029
  2. BRIVIACT [Suspect]
     Active Substance: BRIVARACETAM
     Dosage: 50 MICROGRAM, UNK
  3. PALBOCICLIB [Suspect]
     Active Substance: PALBOCICLIB
     Indication: Product used for unknown indication
     Dosage: 125 MILLIGRAM, ONCE DAILY (QD)
     Route: 048
     Dates: start: 20211201
  4. DEXAMETHASONE [Concomitant]
     Active Substance: DEXAMETHASONE
     Indication: Prophylaxis
     Dosage: 2 MILLIGRAM
     Dates: start: 202208, end: 20221029
  5. PANTOPRAZOLE [Concomitant]
     Active Substance: PANTOPRAZOLE
     Indication: Prophylaxis against gastrointestinal ulcer
     Dosage: 40 MILLIGRAM
     Route: 048
     Dates: start: 2022, end: 20221029
  6. TAMSULOSIN [Concomitant]
     Active Substance: TAMSULOSIN
     Indication: Benign prostatic hyperplasia
     Dosage: 0.4 MILLIGRAM
     Route: 048
     Dates: end: 20221029
  7. IBUPROFEN [Concomitant]
     Active Substance: IBUPROFEN
     Indication: Pain prophylaxis
     Dosage: 400 MILLIGRAM
     Route: 048
     Dates: end: 2022

REACTIONS (4)
  - Hydrocephalus [Not Recovered/Not Resolved]
  - Neoplasm progression [Unknown]
  - Headache [Unknown]
  - Product use in unapproved indication [Unknown]

NARRATIVE: CASE EVENT DATE: 20221029
